FAERS Safety Report 6900125-2 (Version None)
Quarter: 2010Q3

REPORT INFORMATION
  Report Type: 
  Country: None (occurrence: None)
  Receive Date: 20100708
  Receipt Date: 20100503
  Transmission Date: 20110219
  Serious: Yes (Other)
  Sender: FDA-Public Use
  Company Number: 2010039263

PATIENT
  Age: 62 Year
  Sex: Male
  Weight: 73 kg

DRUGS (5)
  1. CHANTIX [Suspect]
     Dosage: 0.5 MG ONE DAILY, ORAL; FOR 11 DAYS; 1 MG
     Route: 048
     Dates: end: 20100324
  2. CHANTIX [Suspect]
     Dosage: 0.5 MG ONE DAILY, ORAL; FOR 11 DAYS; 1 MG
     Route: 048
     Dates: start: 20100311
  3. CRESTOR [Concomitant]
  4. BENICAR HCT (HYDROCHLORIDE, OLMESARTAN MEDOXOMIL) [Concomitant]
  5. LORTAB [Concomitant]

REACTIONS (2)
  - DEPRESSION [None]
  - SUICIDAL IDEATION [None]
